FAERS Safety Report 8823440 (Version 1)
Quarter: 2012Q4

REPORT INFORMATION
  Report Type: 
  Country: US (occurrence: US)
  Receive Date: 20121003
  Receipt Date: 20121003
  Transmission Date: 20130627
  Serious: Yes (Other)
  Sender: FDA-Public Use
  Company Number: US-ASTRAZENECA-2012SE74212

PATIENT
  Age: 62 Year
  Sex: Female
  Weight: 68 kg

DRUGS (6)
  1. SYMBICORT [Suspect]
     Indication: ASTHMA
     Dosage: 160 MCG 2 PUFFS BID
     Route: 055
     Dates: start: 200910
  2. INSULIN [Concomitant]
     Indication: TYPE 2 DIABETES MELLITUS
     Dosage: FOUR TIMES A DAY
     Route: 058
  3. SINGULAIR [Concomitant]
     Dosage: DAILY
     Route: 048
  4. ZYRTEC [Concomitant]
     Dosage: LOWEST DOSE BID
     Route: 048
  5. PROAIR [Concomitant]
     Indication: INHALATION THERAPY
     Dosage: PRN
     Route: 055
  6. OMEPRAZOLE [Concomitant]
     Indication: GASTROOESOPHAGEAL REFLUX PROPHYLAXIS
     Route: 048

REACTIONS (5)
  - Sleep apnoea syndrome [Unknown]
  - Tachycardia [Recovered/Resolved]
  - Dysgeusia [Unknown]
  - Hyperglycaemia [Unknown]
  - Cough [Unknown]
